FAERS Safety Report 14950015 (Version 3)
Quarter: 2018Q3

REPORT INFORMATION
  Report Type: Spontaneous
  Country: JP (occurrence: JP)
  Receive Date: 20180530
  Receipt Date: 20180824
  Transmission Date: 20181010
  Serious: Yes (Other)
  Sender: FDA-Public Use
  Company Number: JP-CONCORDIA PHARMACEUTICALS INC.-E2B_00011576

PATIENT
  Age: 35 Year
  Sex: Male

DRUGS (7)
  1. ALEVIATIN [Suspect]
     Active Substance: PHENYTOIN SODIUM
     Indication: SEIZURE
     Dosage: UNKNOWN
     Route: 048
     Dates: start: 20180403
  2. ALEVIATIN [Suspect]
     Active Substance: PHENYTOIN SODIUM
     Route: 048
     Dates: start: 20180514
  3. DEPAKENE [Suspect]
     Active Substance: VALPROIC ACID
     Indication: SEIZURE
     Dosage: UNKNOWN
     Route: 048
     Dates: start: 20180402, end: 201804
  4. ZONISAMIDE. [Suspect]
     Active Substance: ZONISAMIDE
     Indication: SEIZURE
     Dosage: UNKNOWN
     Route: 048
     Dates: start: 20180403
  5. ALEVIATIN [Suspect]
     Active Substance: PHENYTOIN SODIUM
     Route: 048
     Dates: start: 20180426, end: 20180430
  6. ALEVIATIN [Suspect]
     Active Substance: PHENYTOIN SODIUM
     Route: 048
     Dates: start: 20180501, end: 20180502
  7. ALEVIATIN [Suspect]
     Active Substance: PHENYTOIN SODIUM
     Route: 048
     Dates: start: 20180503, end: 20180513

REACTIONS (1)
  - Seizure [Recovering/Resolving]

NARRATIVE: CASE EVENT DATE: 20180408
